FAERS Safety Report 7772599-9 (Version None)
Quarter: 2011Q3

REPORT INFORMATION
  Report Type: 
  Country: None (occurrence: None)
  Receive Date: 20110922
  Receipt Date: 20110127
  Transmission Date: 20111222
  Serious: No
  Sender: FDA-Public Use
  Company Number: US-ASTRAZENECA-2010SE02439

PATIENT
  Age: 41 Year
  Sex: Male
  Weight: 110.2 kg

DRUGS (12)
  1. SEROQUEL [Suspect]
     Indication: ANXIETY
     Route: 048
     Dates: start: 20080101, end: 20100101
  2. SEROQUEL [Suspect]
     Route: 048
     Dates: start: 20100101
  3. SEROQUEL [Suspect]
     Route: 048
     Dates: start: 20100101
  4. SEROQUEL [Suspect]
     Indication: SUICIDAL IDEATION
     Route: 048
     Dates: start: 20080101, end: 20100101
  5. XANAX [Concomitant]
     Indication: ANXIETY
  6. TRAZODONE HCL [Concomitant]
  7. SEROQUEL [Suspect]
     Route: 048
     Dates: start: 20100101
  8. SEROQUEL [Suspect]
     Indication: BIPOLAR DISORDER
     Route: 048
     Dates: start: 20080101, end: 20100101
  9. SEROQUEL [Suspect]
     Route: 048
     Dates: start: 20100101
  10. SEROQUEL [Suspect]
     Indication: DEPRESSION
     Route: 048
     Dates: start: 20080101, end: 20100101
  11. ZOLOFT [Concomitant]
     Indication: DEPRESSION
  12. BACLOFEN [Concomitant]
     Indication: MUSCLE SPASMS

REACTIONS (5)
  - JOINT INJURY [None]
  - DISTURBANCE IN ATTENTION [None]
  - INSOMNIA [None]
  - TACHYPHRENIA [None]
  - DRUG DOSE OMISSION [None]
